FAERS Safety Report 6497796-4 (Version None)
Quarter: 2009Q4

REPORT INFORMATION
  Report Type: 
  Country: None (occurrence: None)
  Receive Date: 20091215
  Receipt Date: 20091211
  Transmission Date: 20100525
  Serious: Yes (Death)
  Sender: FDA-Public Use
  Company Number: US-JNJFOC-20091204007

PATIENT
  Age: 48 Year
  Sex: Female
  Weight: 64.41 kg

DRUGS (6)
  1. FENTANYL [Suspect]
     Indication: DRUG USE FOR UNKNOWN INDICATION
     Dosage: 2 X 50 UG/HR FENTANYL PATCH
     Route: 062
  2. ACETAMINOPHEN [Concomitant]
     Route: 065
  3. OXYCODONE [Concomitant]
     Route: 065
  4. LAMOTRIGINE [Concomitant]
     Route: 065
  5. METOPROLOL [Concomitant]
     Route: 065
  6. CITALOPRAM HYDROBROMIDE [Concomitant]
     Route: 065

REACTIONS (2)
  - DRUG ADMINISTERED AT INAPPROPRIATE SITE [None]
  - DRUG TOXICITY [None]
